FAERS Safety Report 20793457 (Version 2)
Quarter: 2022Q3

REPORT INFORMATION
  Report Type: Spontaneous
  Country: US (occurrence: US)
  Receive Date: 20220506
  Receipt Date: 20220927
  Transmission Date: 20221027
  Serious: Yes (Other)
  Sender: FDA-Public Use
  Company Number: US-BEH-2022144988

PATIENT
  Age: 52 Year
  Sex: Male

DRUGS (8)
  1. IDELVION [Suspect]
     Active Substance: COAGULATION FACTOR IX RECOMBINANT HUMAN
     Indication: Factor IX deficiency
     Dosage: 4500 INTERNATIONAL UNIT, QOW
     Route: 042
     Dates: start: 20220414
  2. IDELVION [Suspect]
     Active Substance: COAGULATION FACTOR IX RECOMBINANT HUMAN
     Indication: Factor IX deficiency
     Dosage: 4500 INTERNATIONAL UNIT, QOW
     Route: 042
     Dates: start: 20220414
  3. IDELVION [Suspect]
     Active Substance: COAGULATION FACTOR IX RECOMBINANT HUMAN
     Dosage: 4500 INTERNATIONAL UNIT, PRN
     Route: 042
     Dates: start: 20220414
  4. IDELVION [Suspect]
     Active Substance: COAGULATION FACTOR IX RECOMBINANT HUMAN
     Dosage: 4500 INTERNATIONAL UNIT, PRN
     Route: 042
     Dates: start: 20220414
  5. IDELVION [Suspect]
     Active Substance: COAGULATION FACTOR IX RECOMBINANT HUMAN
     Dosage: 4039 INTERNATIONAL UNIT, PRN
     Route: 042
     Dates: start: 20220804
  6. IDELVION [Suspect]
     Active Substance: COAGULATION FACTOR IX RECOMBINANT HUMAN
     Dosage: 4039 INTERNATIONAL UNIT, PRN
     Route: 042
     Dates: start: 20220804
  7. IDELVION [Suspect]
     Active Substance: COAGULATION FACTOR IX RECOMBINANT HUMAN
     Dosage: 4039 INTERNATIONAL UNIT, QOW
     Route: 042
     Dates: start: 20220804
  8. IDELVION [Suspect]
     Active Substance: COAGULATION FACTOR IX RECOMBINANT HUMAN
     Dosage: 4039 INTERNATIONAL UNIT, QOW
     Route: 042
     Dates: start: 20220804

REACTIONS (2)
  - Haemarthrosis [Unknown]
  - Haemarthrosis [Unknown]

NARRATIVE: CASE EVENT DATE: 20220801
